FAERS Safety Report 24060011 (Version 1)
Quarter: 2024Q3

REPORT INFORMATION
  Report Type: Spontaneous
  Country: KR (occurrence: None)
  Receive Date: 20240704
  Receipt Date: 20240704
  Transmission Date: 20241017
  Serious: Yes (Hospitalization, Other)
  Sender: Public
  Company Number: None

PATIENT
  Age: 40 Year
  Sex: Female

DRUGS (4)
  1. BACLOFEN [Suspect]
     Active Substance: BACLOFEN
     Indication: Headache
     Route: 065
  2. AFLOQUALONE [Concomitant]
     Active Substance: AFLOQUALONE
  3. DEXIBUPROFEN [Concomitant]
     Active Substance: DEXIBUPROFEN
  4. AMITRIPTYLINE [Concomitant]
     Active Substance: AMITRIPTYLINE

REACTIONS (11)
  - Generalised tonic-clonic seizure [None]
  - Confusional state [None]
  - Mental impairment [None]
  - Dyspnoea [None]
  - Coma [None]
  - Toxicity to various agents [None]
  - Pupillary reflex impaired [None]
  - Areflexia [None]
  - Blood creatinine increased [None]
  - Blood lactic acid increased [None]
  - Intracranial pressure increased [None]
